FAERS Safety Report 7776752-X (Version None)
Quarter: 2011Q3

REPORT INFORMATION
  Report Type: 
  Country: None (occurrence: None)
  Receive Date: 20110926
  Receipt Date: 20110427
  Transmission Date: 20111222
  Serious: No
  Sender: FDA-Public Use
  Company Number: US-BAYER-2011-038840

PATIENT
  Age: 71 Year
  Sex: Female
  Weight: 56.236 kg

DRUGS (1)
  1. ULTRAVIST 150 [Suspect]
     Indication: COMPUTERISED TOMOGRAM
     Dosage: 120 ML, UNK
     Route: 042
     Dates: start: 20110427

REACTIONS (1)
  - URTICARIA [None]
